FAERS Safety Report 4352332-3 (Version None)
Quarter: 2004Q2

REPORT INFORMATION
  Report Type: 
  Country: None (occurrence: None)
  Receive Date: 20040415
  Receipt Date: 20031030
  Transmission Date: 20050107
  Serious: Yes (Life-Threatening)
  Sender: FDA-Public Use
  Company Number: 2003AP03877

PATIENT
  Age: 65 Year
  Sex: Female

DRUGS (2)
  1. ATENOLOL [Suspect]
  2. VERAPAMIL [Suspect]

REACTIONS (1)
  - BRADYCARDIA [None]
